FAERS Safety Report 5426686-0 (Version None)
Quarter: 2007Q3

REPORT INFORMATION
  Report Type: 
  Country: None (occurrence: None)
  Receive Date: 20070731
  Receipt Date: 20070521
  Transmission Date: 20080115
  Serious: No
  Sender: FDA-Public Use
  Company Number: 2006PV009737

PATIENT
  Age: 61 Year
  Sex: Female
  Weight: 115.2 kg

DRUGS (10)
  1. EXENATIDE(EXENATIDE) PEN,DISPOSABLE [Suspect]
     Indication: TYPE 2 DIABETES MELLITUS
     Dosage: 5 UG, 2/D, SUBCUTANEOUS,10 UG,DAILY (1/D), SUBCUTANEOUS, 10 UG,2/D SUBCUTANEOUS
     Route: 058
     Dates: start: 20060225, end: 20060501
  2. EXENATIDE(EXENATIDE) PEN,DISPOSABLE [Suspect]
     Indication: TYPE 2 DIABETES MELLITUS
     Dosage: 5 UG, 2/D, SUBCUTANEOUS,10 UG,DAILY (1/D), SUBCUTANEOUS, 10 UG,2/D SUBCUTANEOUS
     Route: 058
     Dates: start: 20060501
  3. EXENATIDE(EXENATIDE) PEN,DISPOSABLE [Suspect]
     Indication: TYPE 2 DIABETES MELLITUS
     Dosage: 5 UG, 2/D, SUBCUTANEOUS,10 UG,DAILY (1/D), SUBCUTANEOUS, 10 UG,2/D SUBCUTANEOUS
     Route: 058
     Dates: start: 20060801
  4. EXENATIDE [Concomitant]
  5. AMARYL [Concomitant]
  6. STARLIX [Concomitant]
  7. MICARDIS [Concomitant]
  8. AVANDIA [Concomitant]
  9. EXENATIDE(EXENATIDE) PEN,DISPOSABLE [Suspect]
  10. EXENATIDE(EXENATIDE) PEN,DISPOSABLE [Suspect]

REACTIONS (19)
  - ABDOMINAL DISTENSION [None]
  - ANOREXIA [None]
  - CHILLS [None]
  - DECREASED APPETITE [None]
  - DIARRHOEA [None]
  - ENERGY INCREASED [None]
  - ERUCTATION [None]
  - FATIGUE [None]
  - FLATULENCE [None]
  - HEADACHE [None]
  - INFLUENZA [None]
  - MALAISE [None]
  - NAUSEA [None]
  - PAIN [None]
  - SINUS HEADACHE [None]
  - VIRAL INFECTION [None]
  - VOMITING [None]
  - WEIGHT DECREASED [None]
  - WEIGHT FLUCTUATION [None]
